FAERS Safety Report 19866430 (Version 1)
Quarter: 2021Q3

REPORT INFORMATION
  Report Type: Spontaneous
  Country: US (occurrence: US)
  Receive Date: 20210921
  Receipt Date: 20210921
  Transmission Date: 20211014
  Serious: Yes (Other)
  Sender: FDA-Public Use
  Company Number: US-VIELABIO-VIE-2021-US-000113

PATIENT
  Age: 69 Year
  Sex: Male

DRUGS (2)
  1. UPLIZNA [Suspect]
     Active Substance: INEBILIZUMAB-CDON
     Indication: NEUROMYELITIS OPTICA SPECTRUM DISORDER
     Dosage: UNK
     Dates: start: 20210831
  2. UPLIZNA [Suspect]
     Active Substance: INEBILIZUMAB-CDON
     Dosage: UNK
     Dates: start: 20210913

REACTIONS (2)
  - Sudden onset of sleep [Unknown]
  - Somnolence [Unknown]

NARRATIVE: CASE EVENT DATE: 20210831
